FAERS Safety Report 24806665 (Version 1)
Quarter: 2025Q1

REPORT INFORMATION
  Report Type: Spontaneous
  Country: FR (occurrence: FR)
  Receive Date: 20250104
  Receipt Date: 20250104
  Transmission Date: 20250409
  Serious: Yes (Hospitalization, Other)
  Sender: AUROBINDO
  Company Number: FR-AFSSAPS-TS2024001607

PATIENT
  Sex: Male
  Weight: 2.46 kg

DRUGS (2)
  1. BISOPROLOL [Suspect]
     Active Substance: BISOPROLOL
     Indication: Wolff-Parkinson-White syndrome
     Dosage: 2.5 MILLIGRAM, ONCE A DAY
     Route: 064
  2. FLECAINIDE [Suspect]
     Active Substance: FLECAINIDE
     Indication: Wolff-Parkinson-White syndrome
     Dosage: 100 MILLIGRAM, ONCE A DAY
     Route: 064

REACTIONS (3)
  - Foetal growth restriction [Not Recovered/Not Resolved]
  - Medically induced preterm birth [Recovered/Resolved]
  - Maternal exposure during pregnancy [Recovered/Resolved]

NARRATIVE: CASE EVENT DATE: 20230101
